FAERS Safety Report 10156527 (Version 1)
Quarter: 2014Q2

REPORT INFORMATION
  Report Type: Spontaneous
  Country: US (occurrence: US)
  Receive Date: 20140507
  Receipt Date: 20140507
  Transmission Date: 20141212
  Serious: No
  Sender: FDA-Public Use
  Company Number: US-009507513-1404USA015275

PATIENT
  Age: 27 Year
  Sex: Female

DRUGS (1)
  1. NUVARING [Suspect]
     Indication: CONTRACEPTION
     Dosage: 1 RING/3 WEEKS
     Route: 067
     Dates: start: 20140417

REACTIONS (1)
  - Menorrhagia [Not Recovered/Not Resolved]
